FAERS Safety Report 9337451 (Version 2)
Quarter: 2013Q3

REPORT INFORMATION
  Report Type: Spontaneous
  Country: FR (occurrence: FR)
  Receive Date: 20130607
  Receipt Date: 20130725
  Transmission Date: 20140515
  Serious: Yes (Hospitalization)
  Sender: FDA-Public Use
  Company Number: FR-BRISTOL-MYERS SQUIBB COMPANY-18963595

PATIENT
  Age: 35 Year
  Sex: Male
  Weight: 100 kg

DRUGS (2)
  1. ABILIFY TABS 15 MG [Suspect]
     Dosage: 1DF:2 TABS/DAY?17MAY13
     Route: 048
  2. LOXAPAC [Concomitant]
     Route: 048
     Dates: start: 20130517

REACTIONS (3)
  - Gastrointestinal disorder [Recovered/Resolved]
  - Tinnitus [Recovered/Resolved]
  - Diarrhoea [Recovered/Resolved]
